FAERS Safety Report 5275461-9 (Version None)
Quarter: 2007Q1

REPORT INFORMATION
  Report Type: 
  Country: None (occurrence: None)
  Receive Date: 20061213
  Receipt Date: 20060214
  Transmission Date: 20070707
  Serious: Yes (Hospitalization)
  Sender: FDA-Public Use
  Company Number: 2006UW02497

PATIENT
  Sex: Female

DRUGS (2)
  1. SEROQUEL [Suspect]
     Indication: BIPOLAR DISORDER
     Dosage: INGESTED 100 PILLS OF 300 MG FOR A TOTAL OF 30,000 MG
  2. ALCOHOL [Suspect]

REACTIONS (2)
  - INTENTIONAL OVERDOSE [None]
  - TACHYCARDIA [None]
